FAERS Safety Report 10913113 (Version 1)
Quarter: 2015Q1

REPORT INFORMATION
  Report Type: Spontaneous
  Country: US (occurrence: None)
  Receive Date: 20150311
  Receipt Date: 20150311
  Transmission Date: 20150721
  Serious: No
  Sender: FDA-Public Use
  Company Number: 1210513-2015-00064

PATIENT
  Sex: Female

DRUGS (1)
  1. DR. SHEFFIELD ZINC OXIDE OINTMENT (SHEFFIELD PHARM) [Suspect]
     Active Substance: ZINC OXIDE
     Indication: THERAPEUTIC SKIN CARE TOPICAL
     Dosage: TOP 060
     Route: 061

REACTIONS (2)
  - Burning sensation [None]
  - Erythema [None]

NARRATIVE: CASE EVENT DATE: 20120718
